FAERS Safety Report 18529518 (Version 1)
Quarter: 2020Q4

REPORT INFORMATION
  Report Type: Spontaneous
  Country: US (occurrence: US)
  Receive Date: 20201120
  Receipt Date: 20201120
  Transmission Date: 20210114
  Serious: Yes (Other)
  Sender: FDA-Public Use
  Company Number: US-NOVOPROD-708562

PATIENT
  Sex: Male

DRUGS (1)
  1. NOVOLOG [Suspect]
     Active Substance: INSULIN ASPART
     Indication: DIABETES MELLITUS
     Dosage: 22 IU, QD (6 UNITS, 6 UNITS, THEN 10 UNITS PER DAY)
     Route: 058

REACTIONS (2)
  - Blood glucose increased [Recovering/Resolving]
  - Product quality issue [Recovering/Resolving]
